FAERS Safety Report 7635198 (Version 3)
Quarter: 2018Q3

REPORT INFORMATION
  Report Type: Spontaneous
  Country: US (occurrence: US)
  Receive Date: 20101020
  Receipt Date: 20180927
  Transmission Date: 20181010
  Serious: Yes (Life-Threatening, Hospitalization, Other)
  Sender: FDA-Public Use
  Company Number: US-BAYER-201036845NA

PATIENT
  Age: 67 Year
  Sex: Male
  Weight: 74.84 kg

DRUGS (37)
  1. CLOPIDOGREL [Concomitant]
     Active Substance: CLOPIDOGREL BISULFATE
  2. PLETAL [Concomitant]
     Active Substance: CILOSTAZOL
  3. ACETAMINOPHEN W/HYDROCODONE [Concomitant]
     Active Substance: ACETAMINOPHEN\HYDROCODONE
  4. SINGULAIR [Concomitant]
     Active Substance: MONTELUKAST SODIUM
  5. CHERATUSSIN AC [Concomitant]
     Active Substance: CODEINE PHOSPHATE\GUAIFENESIN
  6. ROBITUSSIN PE [Concomitant]
     Route: 048
  7. PIOGLITAZONE. [Concomitant]
     Active Substance: PIOGLITAZONE
  8. PEPCID [Concomitant]
     Active Substance: FAMOTIDINE
  9. ADVAIR DISKUS [Concomitant]
     Active Substance: FLUTICASONE PROPIONATE\SALMETEROL XINAFOATE
     Dosage: 250/50
     Route: 055
  10. MYLANTA GAS [Concomitant]
  11. ADVAIR HFA [Concomitant]
     Active Substance: FLUTICASONE PROPIONATE\SALMETEROL XINAFOATE
  12. PLAVIX [Concomitant]
     Active Substance: CLOPIDOGREL BISULFATE
  13. ZOCOR [Concomitant]
     Active Substance: SIMVASTATIN
  14. VALIUM [Concomitant]
     Active Substance: DIAZEPAM
     Dosage: 5 MG, HS
     Route: 048
  15. FLONASE [Concomitant]
     Active Substance: FLUTICASONE PROPIONATE
     Route: 045
  16. ALBUTEROL. [Concomitant]
     Active Substance: ALBUTEROL
     Route: 055
  17. ASPIRIN. [Concomitant]
     Active Substance: ASPIRIN
     Dosage: 81 MG, DAILY
     Route: 048
  18. OMEPRAZOLE. [Concomitant]
     Active Substance: OMEPRAZOLE
  19. ASTEPRO [Concomitant]
     Active Substance: AZELASTINE HYDROCHLORIDE
  20. AVELOX [Suspect]
     Active Substance: MOXIFLOXACIN HYDROCHLORIDE
     Indication: PRODUCTIVE COUGH
     Dosage: UNK
     Route: 048
     Dates: start: 201304
  21. AVELOX [Suspect]
     Active Substance: MOXIFLOXACIN HYDROCHLORIDE
     Indication: WHEEZING
     Dosage: 400 MG, UNK
     Dates: start: 20100302, end: 20100302
  22. AVELOX [Suspect]
     Active Substance: MOXIFLOXACIN HYDROCHLORIDE
     Indication: RHINITIS
  23. JANUMET [Concomitant]
     Active Substance: METFORMIN HYDROCHLORIDE\SITAGLIPTIN PHOSPHATE
  24. LIVALO [Concomitant]
     Active Substance: PITAVASTATIN CALCIUM
  25. AVELOX [Suspect]
     Active Substance: MOXIFLOXACIN HYDROCHLORIDE
     Indication: PYREXIA
  26. PRILOSEC [Concomitant]
     Active Substance: OMEPRAZOLE MAGNESIUM
     Route: 048
  27. METOPROLOL. [Concomitant]
     Active Substance: METOPROLOL
  28. DOXYCYCLINE. [Concomitant]
     Active Substance: DOXYCYCLINE
  29. AVELOX [Suspect]
     Active Substance: MOXIFLOXACIN HYDROCHLORIDE
     Indication: NASAL CONGESTION
  30. ACICLOVIR [Concomitant]
     Active Substance: ACYCLOVIR
  31. XOPENEX [Concomitant]
     Active Substance: LEVALBUTEROL HYDROCHLORIDE
  32. LOVENOX [Concomitant]
     Active Substance: ENOXAPARIN SODIUM
  33. AVELOX [Suspect]
     Active Substance: MOXIFLOXACIN HYDROCHLORIDE
     Indication: DYSPNOEA
     Dosage: 400 MG, UNK
     Dates: start: 20100617, end: 20100617
  34. AVELOX [Suspect]
     Active Substance: MOXIFLOXACIN HYDROCHLORIDE
     Indication: ACUTE SINUSITIS
  35. AVELOX [Suspect]
     Active Substance: MOXIFLOXACIN HYDROCHLORIDE
     Indication: COUGH
  36. PULMICORT TURBUHALER [Concomitant]
     Active Substance: BUDESONIDE
  37. VOLTAREN [Concomitant]
     Active Substance: DICLOFENAC SODIUM

REACTIONS (11)
  - Anaphylactic shock [Recovering/Resolving]
  - Asthenia [Recovering/Resolving]
  - Rash erythematous [Recovering/Resolving]
  - Heart injury [Unknown]
  - Neuropathy peripheral [Not Recovered/Not Resolved]
  - Presyncope [Recovering/Resolving]
  - Blood pressure systolic decreased [Recovering/Resolving]
  - Acute myocardial infarction [Unknown]
  - Loss of personal independence in daily activities [Not Recovered/Not Resolved]
  - Pain [Recovering/Resolving]
  - Stress [Unknown]

NARRATIVE: CASE EVENT DATE: 201006
